FAERS Safety Report 6280039-4 (Version None)
Quarter: 2009Q3

REPORT INFORMATION
  Report Type: 
  Country: None (occurrence: None)
  Receive Date: 20090723
  Receipt Date: 20090715
  Transmission Date: 20100115
  Serious: Yes (Hospitalization)
  Sender: FDA-Public Use
  Company Number: US-CELGENEUS-163-21880-09071177

PATIENT
  Sex: Male

DRUGS (4)
  1. REVLIMID [Suspect]
     Indication: MULTIPLE MYELOMA
     Route: 048
     Dates: start: 20090401
  2. REVLIMID [Suspect]
     Route: 048
     Dates: start: 20080801
  3. REVLIMID [Suspect]
     Route: 048
     Dates: start: 20080501
  4. REVLIMID [Suspect]
     Route: 048
     Dates: start: 20080801

REACTIONS (2)
  - GASTROINTESTINAL DISORDER [None]
  - NEPHROLITHIASIS [None]
